FAERS Safety Report 11189271 (Version 1)
Quarter: 2015Q2

REPORT INFORMATION
  Report Type: Spontaneous
  Country: CN (occurrence: CN)
  Receive Date: 20150615
  Receipt Date: 20150615
  Transmission Date: 20150821
  Serious: Yes (Other)
  Sender: FDA-Public Use
  Company Number: CN-BAYER-2015-306274

PATIENT
  Age: 40 Year
  Sex: Female

DRUGS (1)
  1. MIRENA [Suspect]
     Active Substance: LEVONORGESTREL
     Indication: ADENOMYOSIS
     Dosage: 20 MCG/24HR, CONT
     Route: 015
     Dates: start: 20140816, end: 2015

REACTIONS (7)
  - Endometrial hypertrophy [Recovered/Resolved]
  - Off label use [None]
  - Dysmenorrhoea [Recovered/Resolved]
  - Uterine enlargement [Recovered/Resolved]
  - Endometrial stromal sarcoma [Recovered/Resolved]
  - Tumour necrosis [Recovered/Resolved]
  - Tumour haemorrhage [Recovered/Resolved]

NARRATIVE: CASE EVENT DATE: 20140816
